FAERS Safety Report 10167160 (Version 1)
Quarter: 2014Q2

REPORT INFORMATION
  Report Type: Other
  Country: DK (occurrence: AU)
  Receive Date: 20140512
  Receipt Date: 20140512
  Transmission Date: 20141212
  Serious: Yes (Death)
  Sender: FDA-Public Use
  Company Number: AU-FRI-1000067168

PATIENT
  Age: 47 Year
  Sex: Female

DRUGS (3)
  1. CITALOPRAM [Suspect]
  2. DIAZEPAM [Suspect]
  3. PROMETHAZINE [Suspect]

REACTIONS (1)
  - Completed suicide [Fatal]
